FAERS Safety Report 24829812 (Version 1)
Quarter: 2025Q1

REPORT INFORMATION
  Report Type: Spontaneous
  Country: PT (occurrence: PT)
  Receive Date: 20250110
  Receipt Date: 20250110
  Transmission Date: 20250409
  Serious: Yes (Other)
  Sender: VIIV
  Company Number: PT-ViiV Healthcare-PT2025ViiV Healthcare001875

PATIENT

DRUGS (12)
  1. LAMIVUDINE [Suspect]
     Active Substance: LAMIVUDINE
     Indication: HIV infection
  2. ABACAVIR [Suspect]
     Active Substance: ABACAVIR
     Indication: HIV infection
  3. DOLUTEGRAVIR [Suspect]
     Active Substance: DOLUTEGRAVIR
     Indication: HIV infection
  4. ZIDOVUDINE [Suspect]
     Active Substance: ZIDOVUDINE
     Indication: HIV infection
  5. TENOFOVIR DISOPROXIL FUMARATE [Suspect]
     Active Substance: TENOFOVIR DISOPROXIL FUMARATE
     Indication: HIV infection
  6. RILPIVIRINE [Suspect]
     Active Substance: RILPIVIRINE
     Indication: HIV infection
  7. EMTRICITABINE [Suspect]
     Active Substance: EMTRICITABINE
     Indication: HIV infection
  8. DARUNAVIR [Suspect]
     Active Substance: DARUNAVIR
     Indication: HIV infection
  9. EFAVIRENZ [Suspect]
     Active Substance: EFAVIRENZ
     Indication: HIV infection
  10. NEVIRAPINE [Suspect]
     Active Substance: NEVIRAPINE
     Indication: HIV infection
  11. RITONAVIR [Suspect]
     Active Substance: RITONAVIR
     Indication: HIV infection
  12. COBICISTAT [Suspect]
     Active Substance: COBICISTAT
     Indication: HIV infection

REACTIONS (3)
  - Eyelid ptosis [Not Recovered/Not Resolved]
  - Lipodystrophy acquired [Not Recovered/Not Resolved]
  - Floppy eyelid syndrome [Not Recovered/Not Resolved]
